FAERS Safety Report 6497245-6 (Version None)
Quarter: 2009Q4

REPORT INFORMATION
  Report Type: 
  Country: None (occurrence: None)
  Receive Date: 20091215
  Receipt Date: 20090710
  Transmission Date: 20100525
  Serious: No
  Sender: FDA-Public Use
  Company Number: A0797390A

PATIENT
  Sex: Male

DRUGS (2)
  1. AVODART [Suspect]
     Indication: DRUG USE FOR UNKNOWN INDICATION
     Route: 048
     Dates: start: 20090101
  2. SAW PALMETTO [Suspect]
     Route: 065
     Dates: start: 19940101, end: 20090101

REACTIONS (2)
  - DRUG INTERACTION [None]
  - DYSURIA [None]
